FAERS Safety Report 8691901 (Version 3)
Quarter: 2014Q1

REPORT INFORMATION
  Report Type: Spontaneous
  Country: US (occurrence: US)
  Receive Date: 20120730
  Receipt Date: 20140319
  Transmission Date: 20141002
  Serious: Yes (Other)
  Sender: FDA-Public Use
  Company Number: US-ROCHE-784573

PATIENT
  Age: 27 Year
  Sex: Male
  Weight: 79.45 kg

DRUGS (4)
  1. ACCUTANE [Suspect]
     Indication: ACNE
     Route: 065
     Dates: start: 199212, end: 199303
  2. ACCUTANE [Suspect]
     Dosage: 40-80, UNIT UNSPECIFIED
     Route: 065
  3. ACCUTANE [Suspect]
     Dosage: 40-80-40 MG
     Route: 065
  4. ACCUTANE [Suspect]
     Dosage: 40-80-40 MG
     Route: 065
     Dates: start: 199606, end: 19960626

REACTIONS (8)
  - Inflammatory bowel disease [Unknown]
  - Colitis ulcerative [Unknown]
  - Depression [Unknown]
  - Small intestinal obstruction [Unknown]
  - Irritable bowel syndrome [Unknown]
  - Blood creatine phosphokinase increased [Unknown]
  - Lip dry [Unknown]
  - Arthralgia [Unknown]
